FAERS Safety Report 6093093-X (Version None)
Quarter: 2009Q1

REPORT INFORMATION
  Report Type: 
  Country: None (occurrence: None)
  Receive Date: 20090226
  Receipt Date: 20090218
  Transmission Date: 20090719
  Serious: Yes (Hospitalization, Other)
  Sender: FDA-Public Use
  Company Number: US-BAXTER-2008BH011235

PATIENT
  Age: 58 Year
  Sex: Female
  Weight: 71 kg

DRUGS (5)
  1. CYCLOPHOSPHAMIDE [Suspect]
     Indication: BREAST CANCER
     Route: 042
     Dates: start: 20080926, end: 20081031
  2. PACLITAXEL [Suspect]
     Indication: BREAST CANCER
     Route: 042
     Dates: start: 20080804, end: 20080912
  3. EPIRUBICIN [Suspect]
     Indication: BREAST CANCER
     Route: 042
     Dates: start: 20080620, end: 20080721
  4. LENOGRASTIM [Suspect]
     Indication: PROPHYLAXIS
     Route: 065
     Dates: start: 20080929
  5. DARBEPOETIN ALFA [Concomitant]
     Route: 058
     Dates: start: 20081017, end: 20081017

REACTIONS (2)
  - FATIGUE [None]
  - NEUTROPENIA [None]
